FAERS Safety Report 8230548-3 (Version None)
Quarter: 2012Q1

REPORT INFORMATION
  Report Type: 
  Country: None (occurrence: None)
  Receive Date: 20120323
  Receipt Date: 20120311
  Transmission Date: 20120608
  Serious: Yes (Other)
  Sender: FDA-Public Use
  Company Number: US-MYLANLABS-2012S1004094

PATIENT
  Age: 46 Year
  Sex: Female

DRUGS (8)
  1. PERCOCET [Concomitant]
     Route: 048
  2. TRAMADOL HYDROCHLORIDE [Suspect]
     Indication: PAIN
     Route: 048
     Dates: start: 20090101, end: 20110101
  3. REQUIP [Concomitant]
     Route: 048
  4. KLONOPIN [Concomitant]
     Route: 048
  5. PHENERGAN [Concomitant]
     Route: 048
  6. AMBIEN [Concomitant]
     Route: 048
  7. ZOLOFT [Concomitant]
     Route: 048
  8. NORFLEX [Concomitant]
     Route: 048

REACTIONS (11)
  - BRUXISM [None]
  - FALL [None]
  - HALLUCINATION [None]
  - PETIT MAL EPILEPSY [None]
  - LOSS OF CONSCIOUSNESS [None]
  - TOOTH INJURY [None]
  - HYPERSOMNIA [None]
  - DIPLOPIA [None]
  - FATIGUE [None]
  - RIB FRACTURE [None]
  - DYSARTHRIA [None]
